FAERS Safety Report 14746163 (Version 1)
Quarter: 2018Q2

REPORT INFORMATION
  Report Type: Spontaneous
  Country: US (occurrence: US)
  Receive Date: 20180405
  Receipt Date: 20180405
  Transmission Date: 20180711
  Serious: Yes (Hospitalization)
  Sender: FDA-Public Use
  Company Number: None

PATIENT
  Sex: Female

DRUGS (4)
  1. REPATHA [Suspect]
     Active Substance: EVOLOCUMAB
     Indication: HYPERLIPIDAEMIA
     Route: 058
     Dates: start: 20170918
  2. VITAMIN D 50,000 UNITS [Concomitant]
  3. ATORVASTATIN 80MG [Concomitant]
     Active Substance: ATORVASTATIN
  4. LEVOTHYROXINE 75MCG [Concomitant]
     Active Substance: LEVOTHYROXINE

REACTIONS (1)
  - Surgery [None]
